FAERS Safety Report 25686508 (Version 1)
Quarter: 2025Q3

REPORT INFORMATION
  Report Type: Spontaneous
  Country: US (occurrence: US)
  Receive Date: 20250815
  Receipt Date: 20250815
  Transmission Date: 20251020
  Serious: No
  Sender: MERCK SHARP & DOHME LLC
  Company Number: US-009507513-2314280

PATIENT

DRUGS (3)
  1. TEMOZOLOMIDE [Suspect]
     Active Substance: TEMOZOLOMIDE
     Indication: Brain neoplasm malignant
     Route: 048
  2. ETOPOSIDE [Concomitant]
     Active Substance: ETOPOSIDE
     Indication: Brain neoplasm malignant
  3. TOPOTECAN [Concomitant]
     Active Substance: TOPOTECAN HYDROCHLORIDE
     Indication: Brain neoplasm malignant

REACTIONS (1)
  - Product use in unapproved indication [Unknown]
